FAERS Safety Report 6529242-6 (Version None)
Quarter: 2010Q1

REPORT INFORMATION
  Report Type: 
  Country: None (occurrence: None)
  Receive Date: 20100107
  Receipt Date: 20091231
  Transmission Date: 20100710
  Serious: Yes (Other)
  Sender: FDA-Public Use
  Company Number: CN-ROCHE-677282

PATIENT
  Age: 33 Year
  Sex: Female

DRUGS (1)
  1. PEG-INTERFERON ALFA 2A (RO 25-8310) [Suspect]
     Indication: HEPATITIS B
     Route: 058
     Dates: start: 20080815, end: 20091101

REACTIONS (3)
  - HAEMANGIOMA OF LIVER [None]
  - MENSTRUATION IRREGULAR [None]
  - THYROID NEOPLASM [None]
